FAERS Safety Report 22331301 (Version 1)
Quarter: 2023Q2

REPORT INFORMATION
  Report Type: Spontaneous
  Country: US (occurrence: None)
  Receive Date: 20230515
  Receipt Date: 20230515
  Transmission Date: 20230722
  Serious: No
  Sender: FDA-Public Use
  Company Number: None

PATIENT
  Sex: 0

DRUGS (1)
  1. TOLTERODINE [Suspect]
     Active Substance: TOLTERODINE

REACTIONS (2)
  - Dry mouth [None]
  - Dry eye [None]
